FAERS Safety Report 19729423 (Version 2)
Quarter: 2022Q2

REPORT INFORMATION
  Report Type: Spontaneous
  Country: US (occurrence: US)
  Receive Date: 20210820
  Receipt Date: 20220513
  Transmission Date: 20220721
  Serious: No
  Sender: FDA-Public Use
  Company Number: US-PFIZER INC-2021684504

PATIENT
  Age: 61 Year
  Sex: Female

DRUGS (2)
  1. XELJANZ XR [Suspect]
     Active Substance: TOFACITINIB CITRATE
     Dosage: 11 MG
  2. XELJANZ XR [Suspect]
     Active Substance: TOFACITINIB CITRATE
     Dosage: 11 MG, ALTERNATE DAY ( (TAKE A PILL EVERY OTHER DAY)

REACTIONS (4)
  - Drug ineffective [Unknown]
  - Urinary tract infection [Unknown]
  - Arthritis [Not Recovered/Not Resolved]
  - Swelling [Not Recovered/Not Resolved]
